FAERS Safety Report 10973617 (Version 1)
Quarter: 2015Q2

REPORT INFORMATION
  Report Type: Spontaneous
  Country: US (occurrence: US)
  Receive Date: 20150401
  Receipt Date: 20150401
  Transmission Date: 20150821
  Serious: No
  Sender: FDA-Public Use
  Company Number: US-009507513-1503USA009123

PATIENT
  Age: 14 Year
  Sex: Female
  Weight: 74.83 kg

DRUGS (1)
  1. NEXPLANON [Suspect]
     Active Substance: ETONOGESTREL
     Indication: PROPHYLAXIS
     Dosage: 1 IMPLANT/ 3 YEARS
     Route: 059
     Dates: start: 20130903

REACTIONS (5)
  - Drug administered to patient of inappropriate age [Unknown]
  - Implant site pain [Unknown]
  - Menstrual disorder [Unknown]
  - Metrorrhagia [Unknown]
  - Amenorrhoea [Recovered/Resolved]

NARRATIVE: CASE EVENT DATE: 2013
